FAERS Safety Report 9712936 (Version 1)
Quarter: 2013Q4

REPORT INFORMATION
  Report Type: Spontaneous
  Country: US (occurrence: US)
  Receive Date: 20131126
  Receipt Date: 20131126
  Transmission Date: 20140711
  Serious: No
  Sender: FDA-Public Use
  Company Number: US-BRISTOL-MYERS SQUIBB COMPANY-19368760

PATIENT
  Age: 65 Year
  Sex: Male
  Weight: 140.59 kg

DRUGS (4)
  1. BYDUREON 2MG SUSPENSION [Suspect]
     Indication: TYPE 2 DIABETES MELLITUS
     Route: 058
     Dates: start: 201306
  2. LEVEMIR [Concomitant]
  3. NOVOLOG [Concomitant]
  4. METFORMIN HCL TABS [Concomitant]
     Dosage: TABS

REACTIONS (2)
  - Injection site mass [Not Recovered/Not Resolved]
  - Injection site haemorrhage [Unknown]
